FAERS Safety Report 6313501-6 (Version None)
Quarter: 2009Q3

REPORT INFORMATION
  Report Type: 
  Country: None (occurrence: None)
  Receive Date: 20090818
  Receipt Date: 20090812
  Transmission Date: 20100115
  Serious: Yes (Death, Hospitalization)
  Sender: FDA-Public Use
  Company Number: US-CELGENEUS-163-21880-09070748

PATIENT
  Sex: Male
  Weight: 85.806 kg

DRUGS (48)
  1. REVLIMID [Suspect]
     Route: 048
     Dates: start: 20090615, end: 20090703
  2. DECITABINE [Suspect]
     Route: 051
     Dates: start: 20090615, end: 20090619
  3. LORAZEPAM [Concomitant]
     Indication: AGITATION
     Route: 051
     Dates: start: 20090708, end: 20090708
  4. SODIUM CHLORIDE [Concomitant]
     Indication: HYPOTENSION
     Route: 051
     Dates: start: 20090701, end: 20090701
  5. SODIUM CHLORIDE [Concomitant]
     Route: 051
     Dates: start: 20090702, end: 20090702
  6. SODIUM CHLORIDE [Concomitant]
     Route: 051
     Dates: start: 20090708, end: 20090708
  7. SODIUM CHLORIDE [Concomitant]
     Route: 051
     Dates: start: 20090702, end: 20090702
  8. DIPHENHYDRAMINE HCL [Concomitant]
     Indication: PREMEDICATION
     Route: 048
     Dates: start: 20090707, end: 20090708
  9. CALCIUM GLUCONATE [Concomitant]
     Route: 051
     Dates: start: 20090703, end: 20090703
  10. FUROSEMIDE [Concomitant]
     Route: 065
     Dates: start: 20090703, end: 20090703
  11. OXYCODONE HCL [Concomitant]
     Indication: EPIGASTRIC DISCOMFORT
     Route: 065
     Dates: start: 20090702, end: 20090702
  12. MAGNESIUM SULFATE [Concomitant]
     Indication: DRUG USE FOR UNKNOWN INDICATION
     Route: 051
     Dates: start: 20090702, end: 20090702
  13. CIPROFLOXACIN HCL [Concomitant]
     Indication: INFECTION
     Route: 048
     Dates: start: 20090702, end: 20090702
  14. ACETAMINOPHEN [Concomitant]
     Indication: PREMEDICATION
     Route: 048
     Dates: start: 20090701, end: 20090701
  15. ACETAMINOPHEN [Concomitant]
     Route: 048
     Dates: start: 20090702, end: 20090702
  16. ACETAMINOPHEN [Concomitant]
     Route: 048
     Dates: start: 20090703, end: 20090703
  17. HALOPERIDOL [Concomitant]
     Indication: AGITATION
     Route: 051
     Dates: start: 20090708, end: 20090708
  18. ATIVAN [Concomitant]
     Indication: AGITATION
     Route: 051
     Dates: start: 20090708, end: 20090708
  19. MORPHINE [Concomitant]
     Route: 051
     Dates: start: 20090708, end: 20090708
  20. LAMOTRIGINE [Concomitant]
     Route: 048
     Dates: start: 20090629, end: 20090708
  21. ZOFRAN [Concomitant]
     Indication: NAUSEA
     Route: 051
     Dates: start: 20090701, end: 20090703
  22. ZOFRAN [Concomitant]
     Route: 051
     Dates: start: 20090701, end: 20090708
  23. VENTOLIN [Concomitant]
     Dosage: 1 TREATMENT
     Route: 055
     Dates: start: 20090703, end: 20090703
  24. VENTOLIN [Concomitant]
     Dosage: 1 TREATMENT
     Route: 055
     Dates: start: 20090707, end: 20090708
  25. SODIUM CHLORIDE [Concomitant]
     Indication: DRUG USE FOR UNKNOWN INDICATION
     Route: 051
     Dates: start: 20090705, end: 20090708
  26. SPIRIVA [Concomitant]
     Route: 055
     Dates: start: 20090629, end: 20090703
  27. SPIRIVA [Concomitant]
     Route: 055
     Dates: start: 20090705, end: 20090708
  28. PROTONIX [Concomitant]
     Indication: PROPHYLAXIS
     Route: 048
     Dates: start: 20090702, end: 20090703
  29. PROTONIX [Concomitant]
     Route: 051
     Dates: start: 20090703, end: 20090708
  30. LOVENOX [Concomitant]
     Indication: DRUG USE FOR UNKNOWN INDICATION
     Route: 058
     Dates: start: 20090630, end: 20090701
  31. LOVENOX [Concomitant]
     Route: 058
     Dates: start: 20090707, end: 20090708
  32. CLEOCIN [Concomitant]
     Indication: FEBRILE NEUTROPENIA
     Route: 051
     Dates: start: 20090703, end: 20090708
  33. MAXIPIME [Concomitant]
     Indication: FEBRILE NEUTROPENIA
     Route: 051
     Dates: start: 20090701, end: 20090708
  34. VANCOMYCIN HCL [Concomitant]
     Indication: FEBRILE NEUTROPENIA
     Route: 051
     Dates: start: 20090702, end: 20090703
  35. VANCOMYCIN HCL [Concomitant]
     Route: 051
     Dates: start: 20090708, end: 20090708
  36. DELTASONE [Concomitant]
     Indication: INTERSTITIAL LUNG DISEASE
     Route: 048
     Dates: start: 20090701, end: 20090705
  37. LASIX [Concomitant]
     Route: 051
     Dates: start: 20090703, end: 20090703
  38. DEPAKENE [Concomitant]
     Route: 048
     Dates: start: 20090629, end: 20090703
  39. DEPAKENE [Concomitant]
     Route: 048
     Dates: start: 20090703, end: 20090708
  40. FLOMAX [Concomitant]
     Indication: DRUG USE FOR UNKNOWN INDICATION
     Route: 048
     Dates: start: 20090630, end: 20090703
  41. ANTIBIOTICS [Concomitant]
     Route: 051
     Dates: start: 20090601
  42. SORBITOL [Concomitant]
     Indication: CONSTIPATION
     Route: 048
     Dates: start: 20090703, end: 20090703
  43. AMBIEN [Concomitant]
     Indication: INSOMNIA
     Route: 048
     Dates: start: 20090630, end: 20090703
  44. AVELOX [Concomitant]
     Indication: FEBRILE NEUTROPENIA
     Route: 048
     Dates: start: 20090701, end: 20090703
  45. ROXICODONE [Concomitant]
     Indication: PAIN
     Route: 048
     Dates: start: 20090702, end: 20090702
  46. PRINIVIL [Concomitant]
     Indication: DRUG USE FOR UNKNOWN INDICATION
     Route: 048
     Dates: start: 20090701, end: 20090702
  47. LEVAQUIN [Concomitant]
     Indication: DRUG USE FOR UNKNOWN INDICATION
     Route: 048
     Dates: start: 20090701, end: 20090701
  48. METHYLPREDNISOLONE [Concomitant]
     Indication: DRUG USE FOR UNKNOWN INDICATION
     Route: 051

REACTIONS (2)
  - ASPIRATION [None]
  - INTERSTITIAL LUNG DISEASE [None]
